FAERS Safety Report 5343872-9 (Version None)
Quarter: 2007Q2

REPORT INFORMATION
  Report Type: 
  Country: None (occurrence: None)
  Receive Date: 20070531
  Receipt Date: 20070531
  Transmission Date: 20071010
  Serious: Yes (Other)
  Sender: FDA-Public Use
  Company Number: None

PATIENT
  Sex: Female
  Weight: 70.3075 kg

DRUGS (1)
  1. TRI-SPRINTEC [Suspect]
     Indication: MENSTRUAL CYCLE MANAGEMENT
     Dates: start: 20060505, end: 20070528

REACTIONS (1)
  - HAEMORRHAGE [None]
